FAERS Safety Report 5318790-2 (Version None)
Quarter: 2007Q2

REPORT INFORMATION
  Report Type: 
  Country: None (occurrence: None)
  Receive Date: 20070504
  Receipt Date: 20070504
  Transmission Date: 20071010
  Serious: Yes (Death, Hospitalization)
  Sender: FDA-Public Use
  Company Number: None

PATIENT
  Sex: Male
  Weight: 86.637 kg

DRUGS (2)
  1. ZELNORM [Suspect]
     Indication: CONSTIPATION
     Dosage: 6 MG. TWO TIMES DAILY PO
     Route: 048
     Dates: start: 20060719, end: 20070331
  2. ZELNORM [Suspect]
     Indication: GASTROINTESTINAL HYPOMOTILITY
     Dosage: 6 MG. TWO TIMES DAILY PO
     Route: 048
     Dates: start: 20060719, end: 20070331

REACTIONS (6)
  - BOWEL SOUNDS ABNORMAL [None]
  - CONSTIPATION [None]
  - DIET REFUSAL [None]
  - FLUID INTAKE REDUCED [None]
  - GASTROINTESTINAL HYPOMOTILITY [None]
  - RESPIRATORY ARREST [None]
